FAERS Safety Report 9796272 (Version 2)
Quarter: 2014Q1

REPORT INFORMATION
  Report Type: Report from Study
  Country: US (occurrence: US)
  Receive Date: 20140103
  Receipt Date: 20140113
  Transmission Date: 20141002
  Serious: Yes (Hospitalization)
  Sender: FDA-Public Use
  Company Number: US-ACTELION-A-NJ2013-93160

PATIENT
  Age: 57 Year
  Sex: Female

DRUGS (3)
  1. VENTAVIS [Suspect]
     Indication: PULMONARY ARTERIAL HYPERTENSION
     Dosage: 2.5 MCG, UNK
     Route: 055
  2. ADCIRCA [Concomitant]
     Indication: COR PULMONALE CHRONIC
  3. LETAIRIS [Concomitant]

REACTIONS (1)
  - Bronchitis [Recovered/Resolved]
